FAERS Safety Report 6693186-X (Version None)
Quarter: 2010Q2

REPORT INFORMATION
  Report Type: 
  Country: None (occurrence: None)
  Receive Date: 20100422
  Receipt Date: 20100415
  Transmission Date: 20101027
  Serious: Yes (Hospitalization)
  Sender: FDA-Public Use
  Company Number: US-ELI_LILLY_AND_COMPANY-US201004004383

PATIENT
  Sex: Female

DRUGS (7)
  1. HUMULIN R [Suspect]
     Dosage: 35 U, EACH MORNING
     Dates: start: 20100201
  2. HUMULIN R [Suspect]
     Dosage: 35 U, EACH EVENING
     Dates: start: 20100201
  3. HUMULIN N [Suspect]
     Dosage: 35 U, EACH MORNING
     Dates: start: 20100201
  4. HUMULIN N [Suspect]
     Dosage: 35 U, EACH EVENING
     Dates: start: 20100201
  5. HUMULIN 70/30 [Suspect]
     Dates: start: 19950101, end: 19950101
  6. HUMULIN 50/50 [Suspect]
     Dosage: 70 U, EACH MORNING
     Dates: start: 19950101, end: 20100201
  7. HUMULIN 50/50 [Suspect]
     Dosage: 70 U, EACH EVENING
     Dates: start: 19950101, end: 20100201

REACTIONS (4)
  - BLOOD GLUCOSE INCREASED [None]
  - GAIT DISTURBANCE [None]
  - INJECTION SITE PAIN [None]
  - SKIN LACERATION [None]
